FAERS Safety Report 6886894-9 (Version None)
Quarter: 2010Q3

REPORT INFORMATION
  Report Type: 
  Country: None (occurrence: None)
  Receive Date: 20100730
  Receipt Date: 20100717
  Transmission Date: 20110219
  Serious: Yes (Other)
  Sender: FDA-Public Use
  Company Number: DE-BAYER-201033764GPV

PATIENT
  Age: 50 Year
  Sex: Female

DRUGS (7)
  1. FLUDARABINE PHOSPHATE [Suspect]
     Indication: CHRONIC LYMPHOCYTIC LEUKAEMIA
     Dosage: DAY 1 - DAY 3 (6 CYCLES)
     Route: 042
  2. FLUDARABINE PHOSPHATE [Suspect]
     Dosage: D1-D3 (4 CYCLES)
  3. CYCLOPHOSPHAMIDE [Suspect]
     Indication: CHRONIC LYMPHOCYTIC LEUKAEMIA
     Dosage: DAY 1 - DAY 3; Q DAY 29 (6 CYCLES)
     Route: 042
  4. CYCLOPHOSPHAMIDE [Suspect]
     Dosage: DAY 1 - DAY 3 (4 CYCLES)
     Route: 042
  5. RITUXIMAB [Suspect]
     Indication: CHRONIC LYMPHOCYTIC LEUKAEMIA RECURRENT
  6. VINCRISTINE [Suspect]
     Indication: CHRONIC LYMPHOCYTIC LEUKAEMIA RECURRENT
     Dosage: DAY 1
  7. PREDNISONE [Suspect]
     Indication: CHRONIC LYMPHOCYTIC LEUKAEMIA RECURRENT

REACTIONS (3)
  - MYELODYSPLASTIC SYNDROME [None]
  - PANCYTOPENIA [None]
  - SQUAMOUS CELL CARCINOMA OF THE CERVIX [None]
